FAERS Safety Report 10035556 (Version 2)
Quarter: 2014Q2

REPORT INFORMATION
  Report Type: Spontaneous
  Country: US (occurrence: US)
  Receive Date: 20140325
  Receipt Date: 20140507
  Transmission Date: 20141212
  Serious: No
  Sender: FDA-Public Use
  Company Number: US-PFIZER INC-2014083279

PATIENT
  Age: 37 Year
  Sex: Male
  Weight: 79.37 kg

DRUGS (1)
  1. LYRICA [Suspect]
     Indication: BACK INJURY
     Dosage: 200 MG, 3X/DAY
     Dates: start: 2008, end: 201403

REACTIONS (1)
  - Pain [Recovered/Resolved]
